FAERS Safety Report 8559973-8 (Version None)
Quarter: 2012Q3

REPORT INFORMATION
  Report Type: 
  Country: None (occurrence: None)
  Receive Date: 20120802
  Receipt Date: 20120725
  Transmission Date: 20120928
  Serious: Yes (Hospitalization)
  Sender: FDA-Public Use
  Company Number: US-US-EMD SERONO, INC.-231553K08USA

PATIENT
  Sex: Female

DRUGS (6)
  1. HUMULIN 70/30 [Concomitant]
     Indication: DIABETES MELLITUS
  2. FLONASE [Concomitant]
     Indication: PRODUCT USED FOR UNKNOWN INDICATION
     Route: 045
     Dates: start: 19980101
  3. REBIF [Suspect]
     Indication: MULTIPLE SCLEROSIS
     Route: 058
     Dates: start: 20080516, end: 20120601
  4. LISINOPRIL [Concomitant]
     Indication: BLOOD PRESSURE
  5. UNSPECIFIED MEDICATION [Concomitant]
     Indication: PREMEDICATION
  6. UNSPECIFIED HYPOGLYCEMICS MEDICATION [Concomitant]
     Indication: HYPOGLYCAEMIA

REACTIONS (2)
  - INJECTION SITE ERYTHEMA [None]
  - DIABETIC COMPLICATION [None]
